FAERS Safety Report 23701863 (Version 1)
Quarter: 2024Q2

REPORT INFORMATION
  Report Type: Spontaneous
  Country: DE (occurrence: DE)
  Receive Date: 20240403
  Receipt Date: 20240403
  Transmission Date: 20240715
  Serious: Yes (Other)
  Sender: FDA-Public Use
  Company Number: None

PATIENT
  Age: 47 Year
  Sex: Male
  Weight: 100 kg

DRUGS (1)
  1. OLANZAPINE [Suspect]
     Active Substance: OLANZAPINE
     Indication: Schizophrenia
     Dosage: AT LEAST 10MG 0-0-0-1
     Route: 048
     Dates: start: 20230101, end: 20240229

REACTIONS (4)
  - Necrosis [Recovered/Resolved with Sequelae]
  - Ischaemia [Unknown]
  - Embolism arterial [Recovered/Resolved with Sequelae]
  - Arterial occlusive disease [Unknown]

NARRATIVE: CASE EVENT DATE: 20240226
